FAERS Safety Report 16927525 (Version 6)
Quarter: 2019Q4

REPORT INFORMATION
  Report Type: Spontaneous
  Country: US (occurrence: US)
  Receive Date: 20191016
  Receipt Date: 20191228
  Transmission Date: 20200122
  Serious: Yes (Hospitalization, Other)
  Sender: FDA-Public Use
  Company Number: US-UNITED THERAPEUTICS-UNT-2019-016484

PATIENT
  Age: 60 Year
  Sex: Female
  Weight: 58.5 kg

DRUGS (4)
  1. SILDENAFIL CITRATE. [Concomitant]
     Active Substance: SILDENAFIL CITRATE
     Indication: PRODUCT USED FOR UNKNOWN INDICATION
     Dosage: UNK
     Route: 065
  2. REMODULIN [Suspect]
     Active Substance: TREPROSTINIL
     Dosage: 0.020 ?G/KG, CONTINUING
     Route: 058
  3. LACTULOSE. [Suspect]
     Active Substance: LACTULOSE
     Indication: PRODUCT USED FOR UNKNOWN INDICATION
     Dosage: UNK
     Route: 065
  4. REMODULIN [Suspect]
     Active Substance: TREPROSTINIL
     Indication: PULMONARY ARTERIAL HYPERTENSION
     Dosage: 0.009 ?G/KG, CONTINUING
     Route: 058
     Dates: start: 20190613

REACTIONS (14)
  - Meningitis fungal [Unknown]
  - Dementia [Unknown]
  - Encephalopathy [Unknown]
  - Pyrexia [Unknown]
  - Diarrhoea [Unknown]
  - Amnesia [Unknown]
  - Confusional state [Unknown]
  - Head injury [Unknown]
  - Renal failure [Unknown]
  - Unintentional medical device removal [Unknown]
  - Balance disorder [Unknown]
  - Weight decreased [Unknown]
  - Fall [Recovered/Resolved with Sequelae]
  - Hepatic failure [Unknown]

NARRATIVE: CASE EVENT DATE: 2019
